FAERS Safety Report 9000223 (Version 1)
Quarter: 2013Q1

REPORT INFORMATION
  Report Type: Report from Study
  Country: JP (occurrence: JP)
  Receive Date: 20130102
  Receipt Date: 20130102
  Transmission Date: 20140127
  Serious: Yes (Death, Other)
  Sender: FDA-Public Use
  Company Number: JP-ROCHE-1174262

PATIENT
  Age: 53 Year
  Sex: Male

DRUGS (8)
  1. RITUXIMAB [Suspect]
     Indication: B-CELL LYMPHOMA
     Route: 042
     Dates: start: 20100608
  2. RITUXIMAB [Suspect]
     Route: 042
     Dates: start: 20100616
  3. IBRITUMOMAB TIUXETAN/INDIUM-111 [Suspect]
     Indication: B-CELL LYMPHOMA
     Route: 042
     Dates: start: 20100608
  4. IBRITUMOMAB TIUXETAN\YTTRIUM Y-90 [Suspect]
     Indication: B-CELL LYMPHOMA
     Dosage: 14.8MBQ/KG
     Route: 042
     Dates: start: 20100616
  5. POLARAMINE [Concomitant]
     Route: 048
     Dates: start: 20100608
  6. POLARAMINE [Concomitant]
     Route: 048
     Dates: start: 20100616
  7. LOXONIN [Concomitant]
     Route: 048
     Dates: start: 20100608
  8. LOXONIN [Concomitant]
     Route: 048
     Dates: start: 20100616

REACTIONS (2)
  - Platelet count decreased [Recovered/Resolved]
  - Lymphoma [Fatal]
